FAERS Safety Report 12953906 (Version 4)
Quarter: 2018Q4

REPORT INFORMATION
  Report Type: Spontaneous
  Country: CA (occurrence: CA)
  Receive Date: 20161118
  Receipt Date: 20181209
  Transmission Date: 20190204
  Serious: Yes (Hospitalization, Other)
  Sender: FDA-Public Use
  Company Number: CA-CONCORDIA PHARMACEUTICALS INC.-GSH201611-005859

PATIENT
  Age: 57 Year
  Sex: Female

DRUGS (13)
  1. LEFLUNOMIDE. [Suspect]
     Active Substance: LEFLUNOMIDE
     Indication: PRODUCT USED FOR UNKNOWN INDICATION
     Route: 065
     Dates: start: 2007
  2. ENBREL [Concomitant]
     Active Substance: ETANERCEPT
     Dates: start: 2005
  3. REMICADE [Concomitant]
     Active Substance: INFLIXIMAB
     Dates: start: 2007
  4. MYOCHRYSINE [Suspect]
     Active Substance: GOLD SODIUM THIOMALATE
     Indication: RHEUMATOID ARTHRITIS
     Route: 065
  5. ACTEMRA [Suspect]
     Active Substance: TOCILIZUMAB
     Indication: PRODUCT USED FOR UNKNOWN INDICATION
     Route: 065
     Dates: start: 20160120, end: 20160412
  6. GOLD [Concomitant]
     Active Substance: GOLD
  7. PLAQUENIL [Suspect]
     Active Substance: HYDROXYCHLOROQUINE SULFATE
     Indication: PRODUCT USED FOR UNKNOWN INDICATION
  8. HUMIRA [Concomitant]
     Active Substance: ADALIMUMAB
     Dates: start: 2008
  9. ORENCIA [Concomitant]
     Active Substance: ABATACEPT
     Dosage: LAST DOSE WAS 6 WEEKS AGO; TOLERABILITY ISSUES - INFECTIONS AND VOMITING
     Dates: end: 201809
  10. PLAQUENIL [Suspect]
     Active Substance: HYDROXYCHLOROQUINE SULFATE
     Indication: RHEUMATOID ARTHRITIS
     Route: 065
     Dates: start: 2004, end: 2007
  11. MELOXICAM. [Concomitant]
     Active Substance: MELOXICAM
  12. SULFASALAZINE. [Concomitant]
     Active Substance: SULFASALAZINE
  13. METHOTREXATE. [Concomitant]
     Active Substance: METHOTREXATE
     Dates: start: 2005, end: 2007

REACTIONS (4)
  - Clostridium difficile infection [Unknown]
  - Breast cancer [Unknown]
  - Drug ineffective [Unknown]
  - Rheumatoid arthritis [Not Recovered/Not Resolved]

NARRATIVE: CASE EVENT DATE: 2009
